FAERS Safety Report 24850249 (Version 1)
Quarter: 2025Q1

REPORT INFORMATION
  Report Type: Spontaneous
  Country: US (occurrence: None)
  Receive Date: 20250116
  Receipt Date: 20250116
  Transmission Date: 20250408
  Serious: Yes (Life-Threatening, Hospitalization, Disabling, Other)
  Sender: FDA-CTU
  Company Number: None

PATIENT
  Age: 42 Year
  Sex: Male

DRUGS (1)
  1. HERBALS\MITRAGYNINE [Suspect]
     Active Substance: HERBALS\MITRAGYNINE
     Indication: Product used for unknown indication
     Dates: start: 20241209, end: 20250113

REACTIONS (10)
  - Drug dependence [None]
  - Vomiting [None]
  - Eating disorder [None]
  - Insomnia [None]
  - Dry skin [None]
  - Skin fissures [None]
  - Loss of personal independence in daily activities [None]
  - Memory impairment [None]
  - Incoherent [None]
  - Withdrawal syndrome [None]

NARRATIVE: CASE EVENT DATE: 20250113
